FAERS Safety Report 6216847-5 (Version None)
Quarter: 2009Q2

REPORT INFORMATION
  Report Type: 
  Country: None (occurrence: None)
  Receive Date: 20090605
  Receipt Date: 20090602
  Transmission Date: 20091009
  Serious: Yes (Hospitalization)
  Sender: FDA-Public Use
  Company Number: US-ASTRAZENECA-2009UW04246

PATIENT
  Age: 21724 Day
  Sex: Female
  Weight: 68.9 kg

DRUGS (2)
  1. NEXIUM [Suspect]
     Dosage: NEXIUM WAS TEMPORARILY STOPPED DURING THE HOSPITAL STAY (HOSPITAL DID NOT CARRY NEXIUM).
     Route: 048
     Dates: start: 20070101, end: 20081201
  2. NEXIUM [Suspect]
     Dosage: NEXIUM WAS TEMPORARILY STOPPED DURING THE HOSPITAL STAY (HOSPITAL DID NOT CARRY NEXIUM).
     Route: 048
     Dates: start: 20081201

REACTIONS (3)
  - CARDIAC FAILURE CONGESTIVE [None]
  - GASTROOESOPHAGEAL REFLUX DISEASE [None]
  - PNEUMONIA [None]
